FAERS Safety Report 6456067-2 (Version None)
Quarter: 2009Q4

REPORT INFORMATION
  Report Type: 
  Country: None (occurrence: None)
  Receive Date: 20091125
  Receipt Date: 20091116
  Transmission Date: 20100525
  Serious: Yes (Life-Threatening)
  Sender: FDA-Public Use
  Company Number: FR-JNJFOC-20091106677

PATIENT
  Sex: Female

DRUGS (12)
  1. IXPRIM [Suspect]
     Indication: PAIN
     Route: 048
     Dates: start: 20090929, end: 20091006
  2. SEROPLEX [Suspect]
     Indication: DEPRESSION
     Route: 048
     Dates: start: 20040601
  3. PREVISCAN (FLUINDIONE) [Interacting]
  4. PREVISCAN (FLUINDIONE) [Interacting]
     Indication: PERIPHERAL ISCHAEMIA
  5. DI-ANTALVIC [Concomitant]
     Indication: PAIN
  6. RAMIPRIL [Concomitant]
  7. XANAX [Concomitant]
  8. LOXEN [Concomitant]
  9. PRAXILENE [Concomitant]
  10. CONTALAX [Concomitant]
  11. LIORESAL [Concomitant]
  12. ALL OTHER THERAPEUTIC PRODUCTS [Concomitant]

REACTIONS (4)
  - ANAEMIA [None]
  - DRUG INTERACTION [None]
  - INTERNATIONAL NORMALISED RATIO INCREASED [None]
  - MUSCLE HAEMORRHAGE [None]
